FAERS Safety Report 17758278 (Version 2)
Quarter: 2020Q2

REPORT INFORMATION
  Report Type: Spontaneous
  Country: FR (occurrence: FR)
  Receive Date: 20200507
  Receipt Date: 20200512
  Transmission Date: 20200714
  Serious: Yes (Other)
  Sender: FDA-Public Use
  Company Number: NVSC2020FR123785

PATIENT
  Sex: Male
  Weight: 91 kg

DRUGS (1)
  1. EUCREAS [Suspect]
     Active Substance: METFORMIN HYDROCHLORIDE\VILDAGLIPTIN
     Indication: TYPE 2 DIABETES MELLITUS
     Dosage: 1 DF
     Route: 048
     Dates: start: 2007, end: 20180616

REACTIONS (8)
  - Paralysis [Recovering/Resolving]
  - Polyneuropathy [Recovering/Resolving]
  - Urticaria [Recovered/Resolved]
  - Asthma [Recovered/Resolved]
  - Bradyphrenia [Recovering/Resolving]
  - Allergic oedema [Recovered/Resolved]
  - Fatigue [Recovered/Resolved]
  - Paraesthesia [Recovering/Resolving]

NARRATIVE: CASE EVENT DATE: 2009
